FAERS Safety Report 5903953-5 (Version None)
Quarter: 2008Q3

REPORT INFORMATION
  Report Type: 
  Country: None (occurrence: None)
  Receive Date: 20080930
  Receipt Date: 20080923
  Transmission Date: 20090109
  Serious: Yes (Death)
  Sender: FDA-Public Use
  Company Number: US-GILEAD-2008-0018053

PATIENT
  Sex: Female

DRUGS (24)
  1. LETAIRIS [Suspect]
     Indication: PULMONARY ARTERIAL HYPERTENSION
     Route: 048
     Dates: start: 20080429
  2. BENAZEPRIL HYDROCHLORIDE [Concomitant]
  3. NITRO-BID [Concomitant]
  4. CYCLOPHOSPHAMIDE [Concomitant]
  5. METHYLPREDNISOLONE [Concomitant]
  6. LEVAQUIN [Concomitant]
  7. ZOSYN [Concomitant]
  8. ROCURONIUM BROMIDE [Concomitant]
  9. PROPOFOL [Concomitant]
  10. FLAGYL [Concomitant]
  11. CASPOFUNGIN [Concomitant]
  12. BACTRIM DS [Concomitant]
  13. LINEZOLID [Concomitant]
  14. SPIRIVA [Concomitant]
  15. XOPENEX [Concomitant]
  16. GABAPENTIN [Concomitant]
  17. AMITRIPTYLINE HCL [Concomitant]
  18. HYDROMORPHONE HCL [Concomitant]
  19. MORPHINE SULFATE INJ [Concomitant]
  20. PREVACID [Concomitant]
  21. FAMOTIDINE [Concomitant]
  22. LORATADINE [Concomitant]
  23. FERROUS SULFATE [Concomitant]
  24. ORTHO TRI-CYCLEN [Concomitant]

REACTIONS (1)
  - DEATH [None]
